FAERS Safety Report 4517090-8 (Version None)
Quarter: 2004Q4

REPORT INFORMATION
  Report Type: 
  Country: None (occurrence: None)
  Receive Date: 20041202
  Receipt Date: 20030722
  Transmission Date: 20050328
  Serious: Yes (Death, Life-Threatening, Hospitalization)
  Sender: FDA-Public Use
  Company Number: US-ABBOTT-03P-163-0225455-01

PATIENT
  Sex: Male

DRUGS (9)
  1. RITONAVIR SOFT GELATIN CAPSULES [Suspect]
     Indication: HIV INFECTION
     Route: 048
     Dates: start: 20030620, end: 20030903
  2. TIPRANAVIR [Concomitant]
     Indication: HIV INFECTION
     Route: 048
     Dates: start: 20030620, end: 20030903
  3. ZIDOVUDINE W/LAMIVUDINE [Concomitant]
     Indication: HIV INFECTION
     Route: 048
     Dates: start: 20030620
  4. VIREAD [Concomitant]
     Indication: HIV INFECTION
     Route: 048
     Dates: start: 20021204
  5. MORPHINE SULFATE [Concomitant]
     Indication: DIARRHOEA
     Route: 048
     Dates: start: 20030707
  6. MORPHINE SULFATE [Concomitant]
     Indication: ABDOMINAL PAIN
     Route: 048
     Dates: start: 20030903
  7. LOMOTIL [Concomitant]
     Indication: DIARRHOEA
     Route: 048
     Dates: start: 20030520
  8. METOCLOPRAMIDE [Concomitant]
     Indication: NAUSEA
     Route: 048
     Dates: start: 20030919
  9. TENOFOVIR [Concomitant]
     Indication: DRUG USE FOR UNKNOWN INDICATION
     Dates: end: 20030903

REACTIONS (15)
  - CACHEXIA [None]
  - CARDIAC ARREST [None]
  - CATHETER RELATED INFECTION [None]
  - DEHYDRATION [None]
  - GASTROENTERITIS [None]
  - GASTROENTERITIS CRYPTOSPORIDIAL [None]
  - HIV DISEASE PROGRESSION [None]
  - HYPOVOLAEMIA [None]
  - METABOLIC ACIDOSIS [None]
  - PNEUMONIA [None]
  - RENAL FAILURE [None]
  - RENAL FAILURE ACUTE [None]
  - SEPTIC SHOCK [None]
  - STAPHYLOCOCCAL BACTERAEMIA [None]
  - WEIGHT DECREASED [None]
